FAERS Safety Report 9055531 (Version 1)
Quarter: 2013Q1

REPORT INFORMATION
  Report Type: Spontaneous
  Country: FR (occurrence: FR)
  Receive Date: 20130206
  Receipt Date: 20130206
  Transmission Date: 20140127
  Serious: Yes (Other)
  Sender: FDA-Public Use
  Company Number: FR-GLAXOSMITHKLINE-B0864127A

PATIENT
  Sex: Male

DRUGS (4)
  1. ZELITREX [Suspect]
     Indication: ANTIVIRAL PROPHYLAXIS
     Dosage: 1G THREE TIMES PER DAY
     Route: 048
     Dates: start: 20130121
  2. METHOTREXATE [Suspect]
     Indication: LYMPHOMA
     Route: 065
     Dates: start: 20130125, end: 20130125
  3. BICARBONATE [Suspect]
  4. IV HYDRATION [Concomitant]

REACTIONS (1)
  - Renal failure [Not Recovered/Not Resolved]
